FAERS Safety Report 8105219-4 (Version None)
Quarter: 2012Q1

REPORT INFORMATION
  Report Type: 
  Country: None (occurrence: None)
  Receive Date: 20120201
  Receipt Date: 20120120
  Transmission Date: 20120608
  Serious: Yes (Hospitalization)
  Sender: FDA-Public Use
  Company Number: US-UCBSA-046777

PATIENT
  Age: 32 Year
  Sex: Female
  Weight: 62.6 kg

DRUGS (22)
  1. CIMZIA [Suspect]
     Indication: CROHN'S DISEASE
     Route: 058
     Dates: start: 20110101, end: 20110101
  2. PERCOCET [Concomitant]
  3. PROTONIX [Concomitant]
     Dosage: 40 MG
  4. ONDANSETRON HCL [Concomitant]
     Dosage: 4 MG, TWICE DAILY AS NEEDED
     Route: 048
  5. HYDROCORTISONE [Concomitant]
  6. ATIVAN [Concomitant]
  7. LOPRESSOR [Concomitant]
     Dosage: 25 MG, HALF TABLET, TWICE DAILY
  8. FOLIC ACID [Concomitant]
     Dosage: TOTAL DAILY DOSE: 1 MG
  9. COUMADIN [Concomitant]
  10. FLAGYL [Concomitant]
     Indication: CROHN'S DISEASE
     Dates: start: 20110608
  11. DURAGESIC-100 [Concomitant]
     Dosage: 25 MCG EVERY 72 HOURS
     Route: 062
  12. CARAFATE [Concomitant]
     Dosage: 10 MG/ML 10 ML AT BEFORE MEALS (A.C) AND AT BEDTIME (H.C)
  13. FENTANYL-100 [Concomitant]
     Dosage: 25MCG EVERY 72 HOURS
  14. PREDNISONE TAB [Concomitant]
     Indication: CROHN'S DISEASE
     Dosage: 30 MG QE
     Dates: start: 20050201, end: 20110801
  15. OXYCODONE HCL [Concomitant]
  16. K-TAB [Concomitant]
  17. VALTREX [Concomitant]
     Dosage: TOTAL DAILY DOSE: 1 G
  18. BACLOFEN [Concomitant]
  19. LIBRIUM [Concomitant]
     Dates: start: 20111001
  20. MESALAMINE [Concomitant]
     Indication: CROHN'S DISEASE
     Dates: start: 20110702
  21. SEVELLA [Concomitant]
     Dosage: 1 TABLET TWICE DAILY
  22. XOPENEX [Concomitant]

REACTIONS (4)
  - SEPSIS [None]
  - ABDOMINAL PAIN [None]
  - HYPOTENSION [None]
  - DEHYDRATION [None]
